FAERS Safety Report 15469962 (Version 1)
Quarter: 2018Q4

REPORT INFORMATION
  Report Type: Spontaneous
  Country: US (occurrence: US)
  Receive Date: 20181005
  Receipt Date: 20181005
  Transmission Date: 20190205
  Serious: Yes (Other)
  Sender: FDA-Public Use
  Company Number: US-ELI_LILLY_AND_COMPANY-US201809011778

PATIENT
  Age: 19 Year
  Sex: Female

DRUGS (9)
  1. FLUOXETINE [Suspect]
     Active Substance: FLUOXETINE HYDROCHLORIDE
     Indication: PRODUCT USED FOR UNKNOWN INDICATION
     Dosage: UNK, UNKNOWN
     Route: 065
  2. CYMBALTA [Suspect]
     Active Substance: DULOXETINE HYDROCHLORIDE
     Indication: ANXIETY
     Dosage: 20 MG, DAILY
     Route: 048
     Dates: start: 201804
  3. CYMBALTA [Suspect]
     Active Substance: DULOXETINE HYDROCHLORIDE
     Dosage: 30 MG, DAILY
     Route: 065
  4. CYMBALTA [Suspect]
     Active Substance: DULOXETINE HYDROCHLORIDE
     Dosage: 25 MG, UNSPECIFIED LIQUID
     Route: 065
  5. ABILIFY [Suspect]
     Active Substance: ARIPIPRAZOLE
     Indication: PRODUCT USED FOR UNKNOWN INDICATION
     Dosage: GENERIC ABILIFY
     Route: 065
     Dates: start: 2017
  6. XANAX [Suspect]
     Active Substance: ALPRAZOLAM
     Indication: ANXIETY
     Dosage: UNK, UNKNOWN
     Route: 065
  7. CYMBALTA [Suspect]
     Active Substance: DULOXETINE HYDROCHLORIDE
     Dosage: 40 MG, DAILY
     Route: 065
  8. CYMBALTA [Suspect]
     Active Substance: DULOXETINE HYDROCHLORIDE
     Dosage: TAPPERING OFF CYMBALTA
     Route: 065
     Dates: start: 201808
  9. KLONOPIN [Suspect]
     Active Substance: CLONAZEPAM
     Indication: ANXIETY
     Dosage: UNK, UNKNOWN
     Route: 065

REACTIONS (25)
  - Choking [Unknown]
  - Abnormal dreams [Recovering/Resolving]
  - Fall [Unknown]
  - Somnolence [Unknown]
  - Memory impairment [Unknown]
  - Vomiting [Unknown]
  - Psychotic disorder [Unknown]
  - Disorientation [Unknown]
  - Crying [Unknown]
  - Anxiety [Unknown]
  - Headache [Unknown]
  - Anger [Unknown]
  - Drug withdrawal syndrome [Unknown]
  - Drug ineffective [Unknown]
  - Seizure [Unknown]
  - Panic attack [Unknown]
  - Hyperhidrosis [Unknown]
  - Serotonin syndrome [Unknown]
  - Feeling abnormal [Unknown]
  - Irritability [Unknown]
  - Seizure [Unknown]
  - Seizure [Recovered/Resolved]
  - Musculoskeletal stiffness [Unknown]
  - Loss of personal independence in daily activities [Unknown]
  - Tremor [Unknown]

NARRATIVE: CASE EVENT DATE: 20180923
